FAERS Safety Report 7724185-4 (Version None)
Quarter: 2011Q3

REPORT INFORMATION
  Report Type: 
  Country: None (occurrence: None)
  Receive Date: 20110829
  Receipt Date: 20110816
  Transmission Date: 20111222
  Serious: Yes (Death)
  Sender: FDA-Public Use
  Company Number: 1000023049

PATIENT
  Age: 81 Year
  Sex: Female

DRUGS (8)
  1. SPIRONOLACTONE [Suspect]
     Dosage: 12.5 MG (12.5 MG,1 IN 1 D),ORAL
     Route: 048
  2. DIGOXIN [Suspect]
     Dates: start: 20100801
  3. RAMIPRIL [Concomitant]
  4. XANAX [Concomitant]
  5. LASILIX (FUROSEMIDE) (FUROSEMIDE) [Concomitant]
  6. KARDEGIC (ACETYLSALICYLATE LYSINE) (ACETYLSALICYLATE LYSINE) [Concomitant]
  7. NEXIUM [Concomitant]
  8. NEBIVOLOL HCL [Suspect]
     Dosage: 5 MG (5 MG,1 IN  D),ORAL
     Route: 048

REACTIONS (3)
  - ATRIOVENTRICULAR BLOCK COMPLETE [None]
  - BLOOD CREATININE INCREASED [None]
  - CREATININE RENAL CLEARANCE DECREASED [None]
